FAERS Safety Report 20772211 (Version 1)
Quarter: 2022Q2

REPORT INFORMATION
  Report Type: Other
  Country: US (occurrence: None)
  Receive Date: 20220502
  Receipt Date: 20220502
  Transmission Date: 20220720
  Serious: No
  Sender: FDA-Public Use
  Company Number: US-ROCHE-3086007

PATIENT
  Sex: Female

DRUGS (1)
  1. OCREVUS [Suspect]
     Active Substance: OCRELIZUMAB
     Indication: Relapsing multiple sclerosis
     Dosage: DATE OF SERVICE 22/OCT/2021 INFUSED 600 MG EVERY 6 MONTHS
     Route: 065

REACTIONS (8)
  - Headache [Unknown]
  - JC polyomavirus test positive [Unknown]
  - Nausea [Unknown]
  - Urinary incontinence [Unknown]
  - Hypoaesthesia [Unknown]
  - Paraesthesia [Unknown]
  - Sleep disorder [Unknown]
  - Obesity [Unknown]
